FAERS Safety Report 5767653-7 (Version None)
Quarter: 2008Q2

REPORT INFORMATION
  Report Type: 
  Country: None (occurrence: None)
  Receive Date: 20080609
  Receipt Date: 20080527
  Transmission Date: 20081010
  Serious: Yes (Death)
  Sender: FDA-Public Use
  Company Number: 2008AL005892

PATIENT
  Age: 91 Year
  Sex: Male

DRUGS (1)
  1. DIGOXIN [Suspect]
     Indication: CARDIAC DISORDER
     Dosage: 0.125MG DAILY PO
     Route: 048
     Dates: start: 20060411, end: 20080411

REACTIONS (5)
  - ASTHENIA [None]
  - DIZZINESS [None]
  - FALL [None]
  - INCREASED UPPER AIRWAY SECRETION [None]
  - RETCHING [None]
